FAERS Safety Report 7554788-1 (Version None)
Quarter: 2011Q2

REPORT INFORMATION
  Report Type: 
  Country: None (occurrence: None)
  Receive Date: 20110617
  Receipt Date: 20110609
  Transmission Date: 20111010
  Serious: Yes (Death)
  Sender: FDA-Public Use
  Company Number: MX-SANOFI-AVENTIS-2011SA036855

PATIENT
  Age: 77 Year
  Sex: Male
  Weight: 57 kg

DRUGS (4)
  1. AMLODIPINE [Concomitant]
     Route: 048
     Dates: start: 20100101, end: 20110414
  2. KETOROLAC TROMETHAMINE [Concomitant]
     Indication: ABDOMINAL PAIN
     Route: 048
     Dates: start: 20100101, end: 20110414
  3. GLIMEPIRIDE [Suspect]
     Route: 048
     Dates: start: 20060101, end: 20110414
  4. BI-EUGLUCON [Concomitant]
     Indication: DIABETES MELLITUS
     Route: 048
     Dates: start: 19910101, end: 20060101

REACTIONS (4)
  - DEATH [None]
  - DIABETES MELLITUS INADEQUATE CONTROL [None]
  - CEREBROVASCULAR ACCIDENT [None]
  - RENAL FAILURE [None]
